FAERS Safety Report 8941471 (Version 1)
Quarter: 2012Q4

REPORT INFORMATION
  Report Type: 
  Country: US (occurrence: US)
  Receive Date: 20121203
  Receipt Date: 20121203
  Transmission Date: 20130627
  Serious: No
  Sender: FDA-Public Use
  Company Number: US-PFIZER INC-2012301147

PATIENT
  Age: 44 Year
  Sex: Female
  Weight: 81.63 kg

DRUGS (6)
  1. NEURONTIN [Suspect]
     Indication: NEUROPATHY PERIPHERAL
     Dosage: 300 mg, 1x/day
     Route: 048
     Dates: start: 20121113, end: 201211
  2. LORAZEPAM [Concomitant]
     Dosage: UNK
  3. TRAMADOL [Concomitant]
     Indication: PAINFUL FEET
     Dosage: UNK
  4. TRAMADOL [Concomitant]
     Indication: PAIN IN LEG
  5. FLUOROURACIL/FOLINIC ACID/OXALIPLATIN [Concomitant]
     Indication: COLON CANCER STAGE III
     Dosage: UNK
  6. DEXAMETHASONE [Concomitant]
     Dosage: UNK

REACTIONS (3)
  - Headache [Unknown]
  - Malaise [Unknown]
  - Nausea [Unknown]
